FAERS Safety Report 7502199-7 (Version None)
Quarter: 2011Q2

REPORT INFORMATION
  Report Type: 
  Country: None (occurrence: None)
  Receive Date: 20110525
  Receipt Date: 20110520
  Transmission Date: 20111010
  Serious: Yes (Life-Threatening, Hospitalization, Other)
  Sender: FDA-Public Use
  Company Number: JP-PFIZER INC-2011083820

PATIENT
  Age: 65 Year
  Sex: Female

DRUGS (3)
  1. GLUFAST [Concomitant]
  2. LYRICA [Suspect]
     Dosage: 150 MG, UNK
     Route: 048
  3. ADALAT CC [Concomitant]

REACTIONS (3)
  - PULMONARY OEDEMA [None]
  - CARDIOMYOPATHY [None]
  - CARDIAC FAILURE [None]
